FAERS Safety Report 7109693-1 (Version None)
Quarter: 2010Q4

REPORT INFORMATION
  Report Type: 
  Country: None (occurrence: None)
  Receive Date: 20101118
  Receipt Date: 20101105
  Transmission Date: 20110411
  Serious: Yes (Disabling, Other)
  Sender: FDA-Public Use
  Company Number: US-PFIZER INC-2010141881

PATIENT
  Sex: Female
  Weight: 62.585 kg

DRUGS (5)
  1. XALATAN [Suspect]
     Indication: INTRAOCULAR PRESSURE INCREASED
     Dosage: 1 GTT IN THE RIGHT EYE EVERY HOUR
     Route: 047
     Dates: start: 20100727
  2. XALATAN [Suspect]
     Dosage: 1 DROP IN THE RIGHT EYE EVERY THIRD NIGHT
     Route: 047
  3. XALATAN [Suspect]
     Dosage: 1 DROP IN THE RIGHT EYE, UNKNOWN FREQUENCY
     Route: 047
     Dates: end: 20101019
  4. AVASTIN [Suspect]
     Indication: MACULAR DEGENERATION
     Dosage: UNK
     Route: 042
     Dates: start: 20100702, end: 20100816
  5. ASPIRIN [Concomitant]
     Dosage: 81 MG, UNK
     Route: 048
     Dates: end: 20100101

REACTIONS (16)
  - ARTHRALGIA [None]
  - BALANCE DISORDER [None]
  - BLADDER PAIN [None]
  - BURNING SENSATION [None]
  - CHEST PAIN [None]
  - FALL [None]
  - HEADACHE [None]
  - HEART RATE INCREASED [None]
  - INTRAOCULAR PRESSURE INCREASED [None]
  - MUSCULAR WEAKNESS [None]
  - PARAESTHESIA [None]
  - PHOTOSENSITIVITY REACTION [None]
  - SUNBURN [None]
  - THROAT TIGHTNESS [None]
  - WALKING AID USER [None]
  - WEIGHT DECREASED [None]
